FAERS Safety Report 5075155-9 (Version None)
Quarter: 2006Q3

REPORT INFORMATION
  Report Type: 
  Country: None (occurrence: None)
  Receive Date: 20060809
  Receipt Date: 20060531
  Transmission Date: 20061208
  Serious: Yes (Hospitalization)
  Sender: FDA-Public Use
  Company Number: US-BAYER-200613720BWH

PATIENT
  Age: 50 Year
  Sex: Male
  Weight: 90 kg

DRUGS (5)
  1. SORAFENIB OR PLACEBO [Suspect]
     Indication: METASTATIC MALIGNANT MELANOMA
     Dosage: TOTAL DAILY DOSE: 800 MG  UNIT DOSE: 200 MG
     Route: 048
     Dates: start: 20060522
  2. DTIC-DOME [Suspect]
     Indication: METASTATIC MALIGNANT MELANOMA
     Dosage: TOTAL DAILY DOSE: 1560 MG  UNIT DOSE: 1000 MG/M2
     Route: 042
     Dates: start: 20060522, end: 20060522
  3. ZOLOFT [Concomitant]
     Indication: DEPRESSION
     Route: 048
  4. ATENOLOL [Concomitant]
     Indication: HYPERTENSION
     Dosage: TOTAL DAILY DOSE: 50 MG
     Route: 048
  5. LOTENSIN [Concomitant]
     Indication: HYPERTENSION
     Route: 048

REACTIONS (11)
  - ABDOMINAL PAIN [None]
  - CHOLELITHIASIS [None]
  - DUODENAL ULCER [None]
  - DUODENITIS [None]
  - GASTRITIS [None]
  - GASTROOESOPHAGEAL REFLUX DISEASE [None]
  - HEPATIC LESION [None]
  - HEPATIC STEATOSIS [None]
  - HIATUS HERNIA [None]
  - LIPASE INCREASED [None]
  - PLATELET COUNT DECREASED [None]
